FAERS Safety Report 16211334 (Version 1)
Quarter: 2019Q2

REPORT INFORMATION
  Report Type: Spontaneous
  Country: IT (occurrence: IT)
  Receive Date: 20190418
  Receipt Date: 20190418
  Transmission Date: 20190711
  Serious: Yes (Other)
  Sender: FDA-Public Use
  Company Number: IT-009507513-1904ITA006338

PATIENT
  Age: 87 Year
  Sex: Male
  Weight: 85 kg

DRUGS (1)
  1. KEYTRUDA [Suspect]
     Active Substance: PEMBROLIZUMAB
     Indication: MALIGNANT MELANOMA
     Dosage: 170 MILLIGRAM, CYCLICAL
     Dates: start: 20180905

REACTIONS (1)
  - Secondary hyperthyroidism [Unknown]

NARRATIVE: CASE EVENT DATE: 20190312
